FAERS Safety Report 7719487-1 (Version None)
Quarter: 2011Q3

REPORT INFORMATION
  Report Type: 
  Country: None (occurrence: None)
  Receive Date: 20110830
  Receipt Date: 20110817
  Transmission Date: 20111222
  Serious: Yes (Death)
  Sender: FDA-Public Use
  Company Number: MX-MYLANLABS-2011S1017576

PATIENT
  Age: 28 Year
  Sex: Female

DRUGS (2)
  1. DOXORUBICIN HCL [Concomitant]
     Indication: ACUTE PROMYELOCYTIC LEUKAEMIA
     Route: 065
  2. TRETINOIN [Suspect]
     Indication: ACUTE PROMYELOCYTIC LEUKAEMIA
     Route: 065

REACTIONS (2)
  - RETINOIC ACID SYNDROME [None]
  - MULTI-ORGAN FAILURE [None]
